FAERS Safety Report 4792200-6 (Version None)
Quarter: 2005Q4

REPORT INFORMATION
  Report Type: 
  Country: None (occurrence: None)
  Receive Date: 20051007
  Receipt Date: 20050929
  Transmission Date: 20060501
  Serious: Yes (Hospitalization, Other)
  Sender: FDA-Public Use
  Company Number: US-MERCK-0510USA00601

PATIENT
  Age: 51 Year
  Sex: Male
  Weight: 114 kg

DRUGS (8)
  1. VIOXX [Suspect]
     Indication: ARTHRITIS
     Route: 048
     Dates: start: 20010210, end: 20040708
  2. VIOXX [Suspect]
     Route: 048
     Dates: start: 20040709, end: 20040714
  3. VIOXX [Suspect]
     Route: 048
     Dates: start: 20040715, end: 20040715
  4. LOTREL [Concomitant]
     Route: 065
  5. IMDUR [Concomitant]
     Route: 065
  6. PRILOSEC [Concomitant]
     Route: 048
  7. ZOLOFT [Concomitant]
     Route: 065
  8. PLAVIX [Concomitant]
     Route: 065

REACTIONS (18)
  - AMNESIA [None]
  - ANTITHROMBIN III DEFICIENCY [None]
  - ATRIAL SEPTAL DEFECT [None]
  - BACK PAIN [None]
  - BLOOD GLUCOSE INCREASED [None]
  - CEREBROVASCULAR ACCIDENT [None]
  - DIABETES MELLITUS NON-INSULIN-DEPENDENT [None]
  - DIASTOLIC DYSFUNCTION [None]
  - HERNIA REPAIR [None]
  - HYPERHIDROSIS [None]
  - HYPOAESTHESIA [None]
  - INJURY [None]
  - INTERVERTEBRAL DISC DEGENERATION [None]
  - METABOLIC SYNDROME [None]
  - MUSCLE SPASMS [None]
  - RADICULAR PAIN [None]
  - TRANSIENT ISCHAEMIC ATTACK [None]
  - VENTRICULAR HYPERTROPHY [None]
